FAERS Safety Report 23748031 (Version 14)
Quarter: 2025Q4

REPORT INFORMATION
  Report Type: Spontaneous
  Country: GB (occurrence: GB)
  Receive Date: 20240416
  Receipt Date: 20251208
  Transmission Date: 20260118
  Serious: Yes (Other)
  Sender: MYLAN
  Company Number: GB-SANDOZ-SDZ2023GB048792

PATIENT
  Sex: Male

DRUGS (490)
  1. CYCLOSPORINE [Suspect]
     Active Substance: CYCLOSPORINE
     Indication: Psoriasis
     Dosage: UNK
  2. CYCLOSPORINE [Suspect]
     Active Substance: CYCLOSPORINE
     Dosage: 300 MILLIGRAM, MONTHLY (DOSE FORM:CAPSULE, SOFT)
  3. CYCLOSPORINE [Suspect]
     Active Substance: CYCLOSPORINE
     Dosage: 300 MILLIGRAM (DOSE FORM:CAPSULE, SOFT)
  4. CYCLOSPORINE [Suspect]
     Active Substance: CYCLOSPORINE
     Dosage: 300 MILLIGRAM, MONTHLY (QMO, DOSE FORM: CAPSULE, SOFT)
  5. CYCLOSPORINE [Suspect]
     Active Substance: CYCLOSPORINE
     Dosage: UNK
  6. CYCLOSPORINE [Suspect]
     Active Substance: CYCLOSPORINE
     Dosage: UNK
  7. CYCLOSPORINE [Suspect]
     Active Substance: CYCLOSPORINE
     Dosage: UNK
  8. CYCLOSPORINE [Suspect]
     Active Substance: CYCLOSPORINE
     Dosage: UNK
  9. CYCLOSPORINE [Suspect]
     Active Substance: CYCLOSPORINE
     Dosage: UNK
  10. CYCLOSPORINE [Suspect]
     Active Substance: CYCLOSPORINE
     Dosage: 300 MILLIGRAM, MONTHLY
  11. CYCLOSPORINE [Suspect]
     Active Substance: CYCLOSPORINE
     Dosage: UNK
  12. CYCLOSPORINE [Suspect]
     Active Substance: CYCLOSPORINE
     Dosage: 300 MILLIGRAM, MONTHLY (QMO)
  13. CYCLOSPORINE [Suspect]
     Active Substance: CYCLOSPORINE
     Dosage: 300 MILLIGRAM
  14. CYCLOSPORINE [Suspect]
     Active Substance: CYCLOSPORINE
     Dosage: 300 MILLIGRAM, MONTHLY
  15. CYCLOSPORINE [Suspect]
     Active Substance: CYCLOSPORINE
     Dosage: UNK
  16. CYCLOSPORINE [Suspect]
     Active Substance: CYCLOSPORINE
     Dosage: 300 MILLIGRAM
  17. CYCLOSPORINE [Suspect]
     Active Substance: CYCLOSPORINE
     Dosage: UNK
  18. CYCLOSPORINE [Suspect]
     Active Substance: CYCLOSPORINE
     Dosage: 300 MILLIGRAM, MONTHLY (QMO, DOSE FORM: CAPSULE, SOFT)
  19. CYCLOSPORINE [Suspect]
     Active Substance: CYCLOSPORINE
     Dosage: 300 MILLIGRAM, MONTHLY
  20. CYCLOSPORINE [Suspect]
     Active Substance: CYCLOSPORINE
     Dosage: 300 MILLIGRAM, MONTHLY (QMO)
  21. CYCLOSPORINE [Suspect]
     Active Substance: CYCLOSPORINE
     Dosage: 300 MILLIGRAM
  22. CYCLOSPORINE [Suspect]
     Active Substance: CYCLOSPORINE
     Dosage: 300 MILLIGRAM, MONTHLY
  23. CYCLOSPORINE [Suspect]
     Active Substance: CYCLOSPORINE
     Dosage: 300 MILLIGRAM
  24. CYCLOSPORINE [Suspect]
     Active Substance: CYCLOSPORINE
     Dosage: UNK
  25. CYCLOSPORINE [Suspect]
     Active Substance: CYCLOSPORINE
     Dosage: UNK
  26. CYCLOSPORINE [Suspect]
     Active Substance: CYCLOSPORINE
     Dosage: UNK
  27. CYCLOSPORINE [Suspect]
     Active Substance: CYCLOSPORINE
     Dosage: UNK
  28. CYCLOSPORINE [Suspect]
     Active Substance: CYCLOSPORINE
     Dosage: UNK
  29. CYCLOSPORINE [Suspect]
     Active Substance: CYCLOSPORINE
     Dosage: UNK
  30. CYCLOSPORINE [Suspect]
     Active Substance: CYCLOSPORINE
     Dosage: UNK
  31. CYCLOSPORINE [Suspect]
     Active Substance: CYCLOSPORINE
     Dosage: UNK
  32. CYCLOSPORINE [Suspect]
     Active Substance: CYCLOSPORINE
     Dosage: UNK
  33. CYCLOSPORINE [Suspect]
     Active Substance: CYCLOSPORINE
     Dosage: UNK
  34. ACITRETIN [Suspect]
     Active Substance: ACITRETIN
     Indication: Psoriasis
     Dosage: 2 DOSAGE FORM, TID (TIME INTERVAL: 0.33333333 DAYS)
  35. ACITRETIN [Suspect]
     Active Substance: ACITRETIN
     Dosage: UNK
  36. ACITRETIN [Suspect]
     Active Substance: ACITRETIN
     Dosage: UNK
  37. ACITRETIN [Suspect]
     Active Substance: ACITRETIN
     Dosage: UNK
  38. ACITRETIN [Suspect]
     Active Substance: ACITRETIN
     Dosage: UNK
  39. ACITRETIN [Suspect]
     Active Substance: ACITRETIN
     Dosage: UNK
  40. ACITRETIN [Suspect]
     Active Substance: ACITRETIN
     Dosage: UNK
  41. ACITRETIN [Suspect]
     Active Substance: ACITRETIN
     Dosage: UNK
  42. ACITRETIN [Suspect]
     Active Substance: ACITRETIN
     Dosage: UNK
  43. ACITRETIN [Suspect]
     Active Substance: ACITRETIN
     Dosage: UNK
  44. ACITRETIN [Suspect]
     Active Substance: ACITRETIN
     Dosage: UNK
  45. ACITRETIN [Suspect]
     Active Substance: ACITRETIN
     Dosage: UNK
  46. ACITRETIN [Suspect]
     Active Substance: ACITRETIN
     Dosage: UNK
  47. ACITRETIN [Suspect]
     Active Substance: ACITRETIN
     Dosage: UNK
  48. ACITRETIN [Suspect]
     Active Substance: ACITRETIN
     Dosage: UNK
  49. ACITRETIN [Suspect]
     Active Substance: ACITRETIN
     Dosage: UNK
  50. ACITRETIN [Suspect]
     Active Substance: ACITRETIN
     Dosage: UNK
  51. BETAMETHASONE DIPROPIONATE\CALCIPOTRIENE MONOHYDRATE [Suspect]
     Active Substance: BETAMETHASONE DIPROPIONATE\CALCIPOTRIENE MONOHYDRATE
     Indication: Product used for unknown indication
     Dosage: UNK, PRN (RARELY, QV)
  52. BETAMETHASONE DIPROPIONATE\CALCIPOTRIENE MONOHYDRATE [Suspect]
     Active Substance: BETAMETHASONE DIPROPIONATE\CALCIPOTRIENE MONOHYDRATE
     Indication: Product used for unknown indication
     Dosage: UNK (RARELY, QV)
  53. BETAMETHASONE DIPROPIONATE\CALCIPOTRIENE MONOHYDRATE [Suspect]
     Active Substance: BETAMETHASONE DIPROPIONATE\CALCIPOTRIENE MONOHYDRATE
     Dosage: UNK (RARELY, QV)
  54. BETAMETHASONE DIPROPIONATE\CALCIPOTRIENE MONOHYDRATE [Suspect]
     Active Substance: BETAMETHASONE DIPROPIONATE\CALCIPOTRIENE MONOHYDRATE
     Dosage: UNK (RARELY, QV)
  55. BETAMETHASONE DIPROPIONATE\CALCIPOTRIENE MONOHYDRATE [Suspect]
     Active Substance: BETAMETHASONE DIPROPIONATE\CALCIPOTRIENE MONOHYDRATE
     Dosage: UNK (RARELY, QV)
  56. BETAMETHASONE DIPROPIONATE\CALCIPOTRIENE MONOHYDRATE [Suspect]
     Active Substance: BETAMETHASONE DIPROPIONATE\CALCIPOTRIENE MONOHYDRATE
     Dosage: UNK (RARELY, QV)
  57. BETAMETHASONE DIPROPIONATE\CALCIPOTRIENE MONOHYDRATE [Suspect]
     Active Substance: BETAMETHASONE DIPROPIONATE\CALCIPOTRIENE MONOHYDRATE
     Dosage: UNK (RARELY, QV)
  58. BETAMETHASONE DIPROPIONATE\CALCIPOTRIENE MONOHYDRATE [Suspect]
     Active Substance: BETAMETHASONE DIPROPIONATE\CALCIPOTRIENE MONOHYDRATE
     Dosage: UNK (RARELY, QV)
  59. BETAMETHASONE DIPROPIONATE\CALCIPOTRIENE MONOHYDRATE [Suspect]
     Active Substance: BETAMETHASONE DIPROPIONATE\CALCIPOTRIENE MONOHYDRATE
     Dosage: UNK (RARELY, QV)
  60. BETAMETHASONE DIPROPIONATE\CALCIPOTRIENE MONOHYDRATE [Suspect]
     Active Substance: BETAMETHASONE DIPROPIONATE\CALCIPOTRIENE MONOHYDRATE
     Dosage: UNK (RARELY, QV)
  61. BETAMETHASONE DIPROPIONATE\CALCIPOTRIENE MONOHYDRATE [Suspect]
     Active Substance: BETAMETHASONE DIPROPIONATE\CALCIPOTRIENE MONOHYDRATE
     Dosage: UNK (RARELY, QV)
  62. BETAMETHASONE DIPROPIONATE\CALCIPOTRIENE MONOHYDRATE [Suspect]
     Active Substance: BETAMETHASONE DIPROPIONATE\CALCIPOTRIENE MONOHYDRATE
     Dosage: UNK (RARELY, QV)
  63. BETAMETHASONE DIPROPIONATE\CALCIPOTRIENE MONOHYDRATE [Suspect]
     Active Substance: BETAMETHASONE DIPROPIONATE\CALCIPOTRIENE MONOHYDRATE
     Dosage: UNK, PRN (RARELY, QV)
  64. BETAMETHASONE DIPROPIONATE\CALCIPOTRIENE MONOHYDRATE [Suspect]
     Active Substance: BETAMETHASONE DIPROPIONATE\CALCIPOTRIENE MONOHYDRATE
     Dosage: UNK (RARELY, QV)
  65. BETAMETHASONE DIPROPIONATE\CALCIPOTRIENE MONOHYDRATE [Suspect]
     Active Substance: BETAMETHASONE DIPROPIONATE\CALCIPOTRIENE MONOHYDRATE
     Dosage: UNK (RARELY, QV)
  66. BETAMETHASONE DIPROPIONATE\CALCIPOTRIENE MONOHYDRATE [Suspect]
     Active Substance: BETAMETHASONE DIPROPIONATE\CALCIPOTRIENE MONOHYDRATE
     Dosage: UNK (RARELY, QV)
  67. BETAMETHASONE DIPROPIONATE\CALCIPOTRIENE MONOHYDRATE [Suspect]
     Active Substance: BETAMETHASONE DIPROPIONATE\CALCIPOTRIENE MONOHYDRATE
     Dosage: UNK, AS NEEDED (RARELY, QV)
  68. BETAMETHASONE DIPROPIONATE\CALCIPOTRIENE MONOHYDRATE [Suspect]
     Active Substance: BETAMETHASONE DIPROPIONATE\CALCIPOTRIENE MONOHYDRATE
     Dosage: UNK (RARELY, QV)
  69. BETAMETHASONE DIPROPIONATE\CALCIPOTRIENE MONOHYDRATE [Suspect]
     Active Substance: BETAMETHASONE DIPROPIONATE\CALCIPOTRIENE MONOHYDRATE
     Dosage: UNK, PRN (RARELY, QV)
  70. BETAMETHASONE DIPROPIONATE\CALCIPOTRIENE MONOHYDRATE [Suspect]
     Active Substance: BETAMETHASONE DIPROPIONATE\CALCIPOTRIENE MONOHYDRATE
     Dosage: UNK (RARELY, QV)
  71. BETAMETHASONE DIPROPIONATE\CALCIPOTRIENE MONOHYDRATE [Suspect]
     Active Substance: BETAMETHASONE DIPROPIONATE\CALCIPOTRIENE MONOHYDRATE
     Dosage: UNK (RARELY, QV); ;
  72. BETAMETHASONE DIPROPIONATE\CALCIPOTRIENE MONOHYDRATE [Suspect]
     Active Substance: BETAMETHASONE DIPROPIONATE\CALCIPOTRIENE MONOHYDRATE
     Dosage: UNK (RARELY, QV); ;; ;
  73. BETAMETHASONE DIPROPIONATE\CALCIPOTRIENE MONOHYDRATE [Suspect]
     Active Substance: BETAMETHASONE DIPROPIONATE\CALCIPOTRIENE MONOHYDRATE
     Dosage: UNK; ;
  74. BETAMETHASONE DIPROPIONATE\CALCIPOTRIENE MONOHYDRATE [Suspect]
     Active Substance: BETAMETHASONE DIPROPIONATE\CALCIPOTRIENE MONOHYDRATE
     Dosage: UNK (RARELY, QV); ;
  75. BETAMETHASONE DIPROPIONATE\CALCIPOTRIENE MONOHYDRATE [Suspect]
     Active Substance: BETAMETHASONE DIPROPIONATE\CALCIPOTRIENE MONOHYDRATE
     Dosage: UNK (RARELY, QV); ;
  76. BETAMETHASONE DIPROPIONATE\CALCIPOTRIENE MONOHYDRATE [Suspect]
     Active Substance: BETAMETHASONE DIPROPIONATE\CALCIPOTRIENE MONOHYDRATE
     Dosage: UNK (RARELY, QV); ;; ;
  77. BETAMETHASONE DIPROPIONATE\CALCIPOTRIENE MONOHYDRATE [Suspect]
     Active Substance: BETAMETHASONE DIPROPIONATE\CALCIPOTRIENE MONOHYDRATE
     Dosage: UNK (RARELY, QV)
  78. BETAMETHASONE DIPROPIONATE\CALCIPOTRIENE MONOHYDRATE [Suspect]
     Active Substance: BETAMETHASONE DIPROPIONATE\CALCIPOTRIENE MONOHYDRATE
     Dosage: RARELY, QV
  79. BETAMETHASONE DIPROPIONATE\CALCIPOTRIENE MONOHYDRATE [Suspect]
     Active Substance: BETAMETHASONE DIPROPIONATE\CALCIPOTRIENE MONOHYDRATE
     Dosage: RARELY, QV
  80. BETAMETHASONE DIPROPIONATE\CALCIPOTRIENE MONOHYDRATE [Suspect]
     Active Substance: BETAMETHASONE DIPROPIONATE\CALCIPOTRIENE MONOHYDRATE
     Dosage: UNK, PRN (RARELY, QV)
  81. BETAMETHASONE DIPROPIONATE\CALCIPOTRIENE MONOHYDRATE [Suspect]
     Active Substance: BETAMETHASONE DIPROPIONATE\CALCIPOTRIENE MONOHYDRATE
     Dosage: UNK (RARELY, QV)
  82. BETAMETHASONE DIPROPIONATE\CALCIPOTRIENE MONOHYDRATE [Suspect]
     Active Substance: BETAMETHASONE DIPROPIONATE\CALCIPOTRIENE MONOHYDRATE
     Dosage: UNK (RARELY, QV)
  83. BETAMETHASONE DIPROPIONATE\CALCIPOTRIENE MONOHYDRATE [Suspect]
     Active Substance: BETAMETHASONE DIPROPIONATE\CALCIPOTRIENE MONOHYDRATE
     Dosage: UNK (RARELY, QV)
  84. BETAMETHASONE DIPROPIONATE\CALCIPOTRIENE MONOHYDRATE [Suspect]
     Active Substance: BETAMETHASONE DIPROPIONATE\CALCIPOTRIENE MONOHYDRATE
     Dosage: UNK
  85. BETAMETHASONE DIPROPIONATE\CALCIPOTRIENE MONOHYDRATE [Suspect]
     Active Substance: BETAMETHASONE DIPROPIONATE\CALCIPOTRIENE MONOHYDRATE
     Dosage: UNK (RARELY, QV)
  86. BETAMETHASONE DIPROPIONATE\CALCIPOTRIENE MONOHYDRATE [Suspect]
     Active Substance: BETAMETHASONE DIPROPIONATE\CALCIPOTRIENE MONOHYDRATE
     Dosage: UNK (RARELY, QV)
  87. BETAMETHASONE DIPROPIONATE\CALCIPOTRIENE MONOHYDRATE [Suspect]
     Active Substance: BETAMETHASONE DIPROPIONATE\CALCIPOTRIENE MONOHYDRATE
     Dosage: UNK (RARELY, QV)
  88. BETAMETHASONE DIPROPIONATE\CALCIPOTRIENE MONOHYDRATE [Suspect]
     Active Substance: BETAMETHASONE DIPROPIONATE\CALCIPOTRIENE MONOHYDRATE
     Dosage: RARELY, QV
  89. BETAMETHASONE DIPROPIONATE\CALCIPOTRIENE MONOHYDRATE [Suspect]
     Active Substance: BETAMETHASONE DIPROPIONATE\CALCIPOTRIENE MONOHYDRATE
     Dosage: RARELY, QV
  90. BETAMETHASONE DIPROPIONATE\CALCIPOTRIENE MONOHYDRATE [Suspect]
     Active Substance: BETAMETHASONE DIPROPIONATE\CALCIPOTRIENE MONOHYDRATE
     Dosage: UNK, PRN (RARELY, QV)
  91. BETAMETHASONE DIPROPIONATE\CALCIPOTRIENE MONOHYDRATE [Suspect]
     Active Substance: BETAMETHASONE DIPROPIONATE\CALCIPOTRIENE MONOHYDRATE
     Dosage: UNK (RARELY, QV)
  92. BETAMETHASONE DIPROPIONATE\CALCIPOTRIENE MONOHYDRATE [Suspect]
     Active Substance: BETAMETHASONE DIPROPIONATE\CALCIPOTRIENE MONOHYDRATE
     Dosage: UNK (RARELY, QV)
  93. BETAMETHASONE DIPROPIONATE\CALCIPOTRIENE MONOHYDRATE [Suspect]
     Active Substance: BETAMETHASONE DIPROPIONATE\CALCIPOTRIENE MONOHYDRATE
     Dosage: UNK (RARELY, QV)
  94. BETAMETHASONE DIPROPIONATE\CALCIPOTRIENE MONOHYDRATE [Suspect]
     Active Substance: BETAMETHASONE DIPROPIONATE\CALCIPOTRIENE MONOHYDRATE
     Dosage: UNK (RARELY, QV)
  95. BETAMETHASONE DIPROPIONATE\CALCIPOTRIENE MONOHYDRATE [Suspect]
     Active Substance: BETAMETHASONE DIPROPIONATE\CALCIPOTRIENE MONOHYDRATE
     Dosage: UNK (RARELY, QV)
  96. BETAMETHASONE DIPROPIONATE\CALCIPOTRIENE MONOHYDRATE [Suspect]
     Active Substance: BETAMETHASONE DIPROPIONATE\CALCIPOTRIENE MONOHYDRATE
     Dosage: UNK (RARELY, QV)
  97. BETAMETHASONE DIPROPIONATE\CALCIPOTRIENE MONOHYDRATE [Suspect]
     Active Substance: BETAMETHASONE DIPROPIONATE\CALCIPOTRIENE MONOHYDRATE
     Dosage: UNK (RARELY, QV)
  98. BETAMETHASONE DIPROPIONATE\CALCIPOTRIENE MONOHYDRATE [Suspect]
     Active Substance: BETAMETHASONE DIPROPIONATE\CALCIPOTRIENE MONOHYDRATE
     Dosage: UNK (RARELY, QV)
  99. BETAMETHASONE DIPROPIONATE\CALCIPOTRIENE MONOHYDRATE [Suspect]
     Active Substance: BETAMETHASONE DIPROPIONATE\CALCIPOTRIENE MONOHYDRATE
     Dosage: UNK (RARELY, QV)
  100. HYDROXYUREA [Suspect]
     Active Substance: HYDROXYUREA
     Indication: Psoriasis
     Dosage: UNK
  101. HYDROXYUREA [Suspect]
     Active Substance: HYDROXYUREA
     Dosage: UNK
  102. HYDROXYUREA [Suspect]
     Active Substance: HYDROXYUREA
     Dosage: UNK
  103. HYDROXYUREA [Suspect]
     Active Substance: HYDROXYUREA
     Dosage: UNK
  104. HYDROXYUREA [Suspect]
     Active Substance: HYDROXYUREA
     Dosage: UNK
  105. HYDROXYUREA [Suspect]
     Active Substance: HYDROXYUREA
     Dosage: UNK
  106. HYDROXYUREA [Suspect]
     Active Substance: HYDROXYUREA
     Dosage: UNK
  107. HYDROXYUREA [Suspect]
     Active Substance: HYDROXYUREA
     Dosage: UNK
  108. HYDROXYUREA [Suspect]
     Active Substance: HYDROXYUREA
     Dosage: UNK
  109. HYDROXYUREA [Suspect]
     Active Substance: HYDROXYUREA
     Dosage: UNK
  110. HYDROXYUREA [Suspect]
     Active Substance: HYDROXYUREA
     Dosage: UNK
  111. HYDROXYUREA [Suspect]
     Active Substance: HYDROXYUREA
     Dosage: UNK
  112. HYDROXYUREA [Suspect]
     Active Substance: HYDROXYUREA
     Dosage: UNK
  113. HYDROXYUREA [Suspect]
     Active Substance: HYDROXYUREA
     Dosage: UNK
  114. HYDROXYUREA [Suspect]
     Active Substance: HYDROXYUREA
     Dosage: UNK
  115. HYDROXYUREA [Suspect]
     Active Substance: HYDROXYUREA
     Dosage: UNK
  116. HYDROXYUREA [Suspect]
     Active Substance: HYDROXYUREA
     Dosage: UNK
  117. HYDROXYUREA [Suspect]
     Active Substance: HYDROXYUREA
     Dosage: UNK
  118. HYDROXYUREA [Suspect]
     Active Substance: HYDROXYUREA
     Dosage: UNK
  119. HYDROXYUREA [Suspect]
     Active Substance: HYDROXYUREA
     Dosage: UNK
  120. HYDROXYUREA [Suspect]
     Active Substance: HYDROXYUREA
     Dosage: UNK
  121. HYDROXYUREA [Suspect]
     Active Substance: HYDROXYUREA
     Dosage: UNK
  122. HYDROXYUREA [Suspect]
     Active Substance: HYDROXYUREA
     Dosage: UNK
  123. HYDROXYUREA [Suspect]
     Active Substance: HYDROXYUREA
     Dosage: UNK
  124. HUMIRA [Suspect]
     Active Substance: ADALIMUMAB
     Indication: Psoriasis
     Dosage: UNK
  125. HUMIRA [Suspect]
     Active Substance: ADALIMUMAB
     Dosage: UNK
  126. HUMIRA [Suspect]
     Active Substance: ADALIMUMAB
     Dosage: UNK
  127. HUMIRA [Suspect]
     Active Substance: ADALIMUMAB
     Dosage: UNK
  128. HUMIRA [Suspect]
     Active Substance: ADALIMUMAB
     Dosage: UNK
  129. HUMIRA [Suspect]
     Active Substance: ADALIMUMAB
     Dosage: UNK
  130. HUMIRA [Suspect]
     Active Substance: ADALIMUMAB
     Dosage: UNK
  131. HUMIRA [Suspect]
     Active Substance: ADALIMUMAB
     Dosage: UNK
  132. HUMIRA [Suspect]
     Active Substance: ADALIMUMAB
     Dosage: UNK
  133. HUMIRA [Suspect]
     Active Substance: ADALIMUMAB
     Dosage: UNK
  134. HUMIRA [Suspect]
     Active Substance: ADALIMUMAB
     Dosage: UNK
  135. HUMIRA [Suspect]
     Active Substance: ADALIMUMAB
     Dosage: UNK
  136. HUMIRA [Suspect]
     Active Substance: ADALIMUMAB
     Dosage: UNK
  137. HUMIRA [Suspect]
     Active Substance: ADALIMUMAB
     Dosage: UNK
  138. METHOTREXATE [Suspect]
     Active Substance: METHOTREXATE
     Indication: Psoriasis
     Dosage: UNK
  139. METHOTREXATE [Suspect]
     Active Substance: METHOTREXATE
     Dosage: UNK
  140. METHOTREXATE [Suspect]
     Active Substance: METHOTREXATE
     Dosage: UNK
  141. METHOTREXATE [Suspect]
     Active Substance: METHOTREXATE
     Dosage: UNK
  142. METHOTREXATE [Suspect]
     Active Substance: METHOTREXATE
     Dosage: UNK
  143. METHOTREXATE [Suspect]
     Active Substance: METHOTREXATE
     Dosage: UNK
  144. METHOTREXATE [Suspect]
     Active Substance: METHOTREXATE
     Dosage: UNK
  145. METHOTREXATE [Suspect]
     Active Substance: METHOTREXATE
     Dosage: UNK
  146. METHOTREXATE [Suspect]
     Active Substance: METHOTREXATE
     Dosage: 2 DOSAGE FORM
  147. METHOTREXATE [Suspect]
     Active Substance: METHOTREXATE
     Dosage: UNK
  148. METHOTREXATE [Suspect]
     Active Substance: METHOTREXATE
     Dosage: UNK
  149. METHOTREXATE [Suspect]
     Active Substance: METHOTREXATE
     Dosage: UNK
  150. METHOTREXATE [Suspect]
     Active Substance: METHOTREXATE
     Dosage: UNK
  151. METHOTREXATE [Suspect]
     Active Substance: METHOTREXATE
     Dosage: UNK
  152. METHOTREXATE [Suspect]
     Active Substance: METHOTREXATE
     Dosage: UNK
  153. METHOTREXATE [Suspect]
     Active Substance: METHOTREXATE
     Dosage: UNK
  154. METHOTREXATE [Suspect]
     Active Substance: METHOTREXATE
     Dosage: UNK
  155. METHOTREXATE [Suspect]
     Active Substance: METHOTREXATE
     Dosage: UNK
  156. METHOTREXATE [Suspect]
     Active Substance: METHOTREXATE
     Dosage: UNK
  157. METHOTREXATE [Suspect]
     Active Substance: METHOTREXATE
     Dosage: UNK
  158. METHOTREXATE [Suspect]
     Active Substance: METHOTREXATE
     Dosage: UNK
  159. METHOTREXATE [Suspect]
     Active Substance: METHOTREXATE
     Dosage: UNK
  160. METHOTREXATE [Suspect]
     Active Substance: METHOTREXATE
     Dosage: UNK
  161. METHOTREXATE [Suspect]
     Active Substance: METHOTREXATE
     Dosage: UNK
  162. METHOTREXATE [Suspect]
     Active Substance: METHOTREXATE
     Dosage: UNK
  163. METHOTREXATE [Suspect]
     Active Substance: METHOTREXATE
     Dosage: UNK
  164. METHOTREXATE [Suspect]
     Active Substance: METHOTREXATE
     Dosage: UNK
  165. METHOTREXATE [Suspect]
     Active Substance: METHOTREXATE
     Dosage: 2 DOSAGE FORM, TID
  166. METHOTREXATE [Suspect]
     Active Substance: METHOTREXATE
     Dosage: UNK
  167. METHOTREXATE [Suspect]
     Active Substance: METHOTREXATE
     Dosage: UNK
  168. METHOTREXATE [Suspect]
     Active Substance: METHOTREXATE
     Dosage: UNK
  169. METHOTREXATE [Suspect]
     Active Substance: METHOTREXATE
     Dosage: UNK
  170. METHOTREXATE [Suspect]
     Active Substance: METHOTREXATE
     Dosage: UNK
  171. METHOTREXATE [Suspect]
     Active Substance: METHOTREXATE
     Dosage: UNK
  172. METHOTREXATE [Suspect]
     Active Substance: METHOTREXATE
     Dosage: UNK
  173. STELARA [Suspect]
     Active Substance: USTEKINUMAB
     Indication: Psoriasis
     Dosage: UNK
  174. STELARA [Suspect]
     Active Substance: USTEKINUMAB
     Dosage: UNK
  175. STELARA [Suspect]
     Active Substance: USTEKINUMAB
     Dosage: UNK
  176. STELARA [Suspect]
     Active Substance: USTEKINUMAB
     Dosage: UNK
  177. STELARA [Suspect]
     Active Substance: USTEKINUMAB
     Dosage: UNK
  178. STELARA [Suspect]
     Active Substance: USTEKINUMAB
     Dosage: UNK
  179. STELARA [Suspect]
     Active Substance: USTEKINUMAB
     Dosage: UNK
  180. STELARA [Suspect]
     Active Substance: USTEKINUMAB
     Dosage: UNK
  181. STELARA [Suspect]
     Active Substance: USTEKINUMAB
     Dosage: UNK
  182. STELARA [Suspect]
     Active Substance: USTEKINUMAB
     Dosage: UNK
  183. STELARA [Suspect]
     Active Substance: USTEKINUMAB
     Dosage: UNK
  184. STELARA [Suspect]
     Active Substance: USTEKINUMAB
     Dosage: UNK
  185. STELARA [Suspect]
     Active Substance: USTEKINUMAB
     Dosage: UNK
  186. STELARA [Suspect]
     Active Substance: USTEKINUMAB
     Dosage: UNK
  187. STELARA [Suspect]
     Active Substance: USTEKINUMAB
     Dosage: UNK
  188. STELARA [Suspect]
     Active Substance: USTEKINUMAB
     Dosage: UNK
  189. STELARA [Suspect]
     Active Substance: USTEKINUMAB
     Dosage: UNK
  190. STELARA [Suspect]
     Active Substance: USTEKINUMAB
     Dosage: UNK
  191. STELARA [Suspect]
     Active Substance: USTEKINUMAB
     Dosage: UNK
  192. STELARA [Suspect]
     Active Substance: USTEKINUMAB
     Dosage: UNK
  193. STELARA [Suspect]
     Active Substance: USTEKINUMAB
     Dosage: UNK
  194. STELARA [Suspect]
     Active Substance: USTEKINUMAB
     Dosage: UNK
  195. STELARA [Suspect]
     Active Substance: USTEKINUMAB
     Dosage: UNK
  196. STELARA [Suspect]
     Active Substance: USTEKINUMAB
     Dosage: UNK
  197. STELARA [Suspect]
     Active Substance: USTEKINUMAB
     Dosage: UNK
  198. STELARA [Suspect]
     Active Substance: USTEKINUMAB
     Dosage: UNK
  199. STELARA [Suspect]
     Active Substance: USTEKINUMAB
     Dosage: UNK
  200. STELARA [Suspect]
     Active Substance: USTEKINUMAB
     Dosage: UNK
  201. STELARA [Suspect]
     Active Substance: USTEKINUMAB
     Dosage: UNK
  202. STELARA [Suspect]
     Active Substance: USTEKINUMAB
     Dosage: UNK
  203. STELARA [Suspect]
     Active Substance: USTEKINUMAB
     Dosage: UNK
  204. STELARA [Suspect]
     Active Substance: USTEKINUMAB
     Dosage: UNK
  205. STELARA [Suspect]
     Active Substance: USTEKINUMAB
     Dosage: UNK
  206. STELARA [Suspect]
     Active Substance: USTEKINUMAB
     Dosage: UNK
  207. STELARA [Suspect]
     Active Substance: USTEKINUMAB
     Dosage: UNK
  208. STELARA [Suspect]
     Active Substance: USTEKINUMAB
     Dosage: UNK
  209. STELARA [Suspect]
     Active Substance: USTEKINUMAB
     Dosage: UNK
  210. STELARA [Suspect]
     Active Substance: USTEKINUMAB
     Dosage: UNK
  211. STELARA [Suspect]
     Active Substance: USTEKINUMAB
     Dosage: UNK
  212. STELARA [Suspect]
     Active Substance: USTEKINUMAB
     Dosage: UNK
  213. STELARA [Suspect]
     Active Substance: USTEKINUMAB
     Dosage: UNK
  214. STELARA [Suspect]
     Active Substance: USTEKINUMAB
     Dosage: UNK
  215. STELARA [Suspect]
     Active Substance: USTEKINUMAB
     Dosage: UNK
  216. STELARA [Suspect]
     Active Substance: USTEKINUMAB
     Dosage: UNK
  217. STELARA [Suspect]
     Active Substance: USTEKINUMAB
     Dosage: UNK
  218. STELARA [Suspect]
     Active Substance: USTEKINUMAB
     Dosage: UNK
  219. STELARA [Suspect]
     Active Substance: USTEKINUMAB
     Dosage: UNK
  220. STELARA [Suspect]
     Active Substance: USTEKINUMAB
     Dosage: UNK
  221. STELARA [Suspect]
     Active Substance: USTEKINUMAB
     Dosage: UNK
  222. STELARA [Suspect]
     Active Substance: USTEKINUMAB
     Dosage: UNK
  223. STELARA [Suspect]
     Active Substance: USTEKINUMAB
     Dosage: UNK
  224. STELARA [Suspect]
     Active Substance: USTEKINUMAB
     Dosage: UNK
  225. STELARA [Suspect]
     Active Substance: USTEKINUMAB
     Dosage: UNK
  226. STELARA [Suspect]
     Active Substance: USTEKINUMAB
     Dosage: UNK
  227. STELARA [Suspect]
     Active Substance: USTEKINUMAB
     Dosage: UNK
  228. STELARA [Suspect]
     Active Substance: USTEKINUMAB
     Dosage: UNK
  229. STELARA [Suspect]
     Active Substance: USTEKINUMAB
     Dosage: UNK
  230. STELARA [Suspect]
     Active Substance: USTEKINUMAB
     Dosage: UNK
  231. STELARA [Suspect]
     Active Substance: USTEKINUMAB
     Dosage: UNK
  232. STELARA [Suspect]
     Active Substance: USTEKINUMAB
     Dosage: UNK
  233. STELARA [Suspect]
     Active Substance: USTEKINUMAB
     Dosage: UNK;OTHER
  234. STELARA [Suspect]
     Active Substance: USTEKINUMAB
     Dosage: UNK
  235. STELARA [Suspect]
     Active Substance: USTEKINUMAB
     Dosage: UNK
  236. STELARA [Suspect]
     Active Substance: USTEKINUMAB
     Dosage: UNK
  237. STELARA [Suspect]
     Active Substance: USTEKINUMAB
     Dosage: UNK
  238. STELARA [Suspect]
     Active Substance: USTEKINUMAB
     Dosage: UNK
  239. STELARA [Suspect]
     Active Substance: USTEKINUMAB
     Dosage: UNK
  240. STELARA [Suspect]
     Active Substance: USTEKINUMAB
     Dosage: UNK
  241. STELARA [Suspect]
     Active Substance: USTEKINUMAB
     Dosage: UNK
  242. STELARA [Suspect]
     Active Substance: USTEKINUMAB
     Dosage: UNK
  243. STELARA [Suspect]
     Active Substance: USTEKINUMAB
     Dosage: UNK
  244. STELARA [Suspect]
     Active Substance: USTEKINUMAB
     Dosage: UNK
  245. STELARA [Suspect]
     Active Substance: USTEKINUMAB
     Dosage: UNK
  246. STELARA [Suspect]
     Active Substance: USTEKINUMAB
     Dosage: UNK
  247. STELARA [Suspect]
     Active Substance: USTEKINUMAB
     Dosage: UNK
  248. STELARA [Suspect]
     Active Substance: USTEKINUMAB
     Dosage: UNK
  249. STELARA [Suspect]
     Active Substance: USTEKINUMAB
     Dosage: UNK
  250. STELARA [Suspect]
     Active Substance: USTEKINUMAB
     Dosage: UNK
  251. STELARA [Suspect]
     Active Substance: USTEKINUMAB
     Dosage: UNK
  252. STELARA [Suspect]
     Active Substance: USTEKINUMAB
     Dosage: UNK
  253. STELARA [Suspect]
     Active Substance: USTEKINUMAB
     Dosage: UNK
  254. STELARA [Suspect]
     Active Substance: USTEKINUMAB
     Dosage: UNK
  255. STELARA [Suspect]
     Active Substance: USTEKINUMAB
     Dosage: UNK
  256. STELARA [Suspect]
     Active Substance: USTEKINUMAB
     Dosage: UNK
  257. STELARA [Suspect]
     Active Substance: USTEKINUMAB
     Dosage: UNK
  258. STELARA [Suspect]
     Active Substance: USTEKINUMAB
     Dosage: UNK
  259. STELARA [Suspect]
     Active Substance: USTEKINUMAB
     Dosage: UNK
  260. STELARA [Suspect]
     Active Substance: USTEKINUMAB
     Dosage: UNK
  261. STELARA [Suspect]
     Active Substance: USTEKINUMAB
     Dosage: UNK
  262. STELARA [Suspect]
     Active Substance: USTEKINUMAB
     Dosage: UNK
  263. STELARA [Suspect]
     Active Substance: USTEKINUMAB
     Dosage: UNK
  264. STELARA [Suspect]
     Active Substance: USTEKINUMAB
     Dosage: UNK
  265. STELARA [Suspect]
     Active Substance: USTEKINUMAB
     Dosage: UNK
  266. STELARA [Suspect]
     Active Substance: USTEKINUMAB
     Dosage: UNK
  267. STELARA [Suspect]
     Active Substance: USTEKINUMAB
     Dosage: UNK
  268. STELARA [Suspect]
     Active Substance: USTEKINUMAB
     Dosage: UNK
  269. STELARA [Suspect]
     Active Substance: USTEKINUMAB
     Dosage: UNK
  270. STELARA [Suspect]
     Active Substance: USTEKINUMAB
     Dosage: UNK
  271. STELARA [Suspect]
     Active Substance: USTEKINUMAB
     Dosage: UNK
  272. STELARA [Suspect]
     Active Substance: USTEKINUMAB
     Dosage: UNK
  273. STELARA [Suspect]
     Active Substance: USTEKINUMAB
     Dosage: UNK
  274. STELARA [Suspect]
     Active Substance: USTEKINUMAB
     Dosage: UNK
  275. STELARA [Suspect]
     Active Substance: USTEKINUMAB
     Dosage: UNK
  276. STELARA [Suspect]
     Active Substance: USTEKINUMAB
     Dosage: UNK
  277. STELARA [Suspect]
     Active Substance: USTEKINUMAB
     Dosage: UNK
  278. STELARA [Suspect]
     Active Substance: USTEKINUMAB
     Dosage: UNK
  279. STELARA [Suspect]
     Active Substance: USTEKINUMAB
     Dosage: UNK
  280. STELARA [Suspect]
     Active Substance: USTEKINUMAB
     Dosage: UNK
  281. STELARA [Suspect]
     Active Substance: USTEKINUMAB
     Dosage: UNK
  282. STELARA [Suspect]
     Active Substance: USTEKINUMAB
     Dosage: UNK
  283. STELARA [Suspect]
     Active Substance: USTEKINUMAB
     Dosage: UNK
  284. STELARA [Suspect]
     Active Substance: USTEKINUMAB
     Dosage: UNK;OTHER
  285. STELARA [Suspect]
     Active Substance: USTEKINUMAB
     Dosage: UNK
  286. STELARA [Suspect]
     Active Substance: USTEKINUMAB
     Dosage: UNK
  287. STELARA [Suspect]
     Active Substance: USTEKINUMAB
     Dosage: UNK
  288. STELARA [Suspect]
     Active Substance: USTEKINUMAB
     Dosage: UNK
  289. STELARA [Suspect]
     Active Substance: USTEKINUMAB
     Dosage: UNK
  290. STELARA [Suspect]
     Active Substance: USTEKINUMAB
     Dosage: UNK
  291. STELARA [Suspect]
     Active Substance: USTEKINUMAB
     Dosage: UNK
  292. STELARA [Suspect]
     Active Substance: USTEKINUMAB
     Dosage: UNK
  293. STELARA [Suspect]
     Active Substance: USTEKINUMAB
     Dosage: UNK
  294. STELARA [Suspect]
     Active Substance: USTEKINUMAB
     Dosage: UNK
  295. STELARA [Suspect]
     Active Substance: USTEKINUMAB
     Dosage: UNK
  296. STELARA [Suspect]
     Active Substance: USTEKINUMAB
     Dosage: UNK
  297. STELARA [Suspect]
     Active Substance: USTEKINUMAB
     Dosage: UNK
  298. STELARA [Suspect]
     Active Substance: USTEKINUMAB
     Dosage: UNK
  299. STELARA [Suspect]
     Active Substance: USTEKINUMAB
     Dosage: UNK
  300. STELARA [Suspect]
     Active Substance: USTEKINUMAB
     Dosage: UNK
  301. STELARA [Suspect]
     Active Substance: USTEKINUMAB
     Dosage: UNK
  302. STELARA [Suspect]
     Active Substance: USTEKINUMAB
     Dosage: UNK
  303. STELARA [Suspect]
     Active Substance: USTEKINUMAB
     Dosage: UNK
  304. STELARA [Suspect]
     Active Substance: USTEKINUMAB
     Dosage: UNK
  305. STELARA [Suspect]
     Active Substance: USTEKINUMAB
     Dosage: UNK
  306. STELARA [Suspect]
     Active Substance: USTEKINUMAB
     Dosage: UNK
  307. STELARA [Suspect]
     Active Substance: USTEKINUMAB
     Dosage: UNK
  308. STELARA [Suspect]
     Active Substance: USTEKINUMAB
     Dosage: UNK
  309. STELARA [Suspect]
     Active Substance: USTEKINUMAB
     Dosage: UNK
  310. STELARA [Suspect]
     Active Substance: USTEKINUMAB
     Dosage: UNK
  311. STELARA [Suspect]
     Active Substance: USTEKINUMAB
     Dosage: UNK
  312. STELARA [Suspect]
     Active Substance: USTEKINUMAB
     Dosage: UNK
  313. STELARA [Suspect]
     Active Substance: USTEKINUMAB
     Dosage: UNK
  314. STELARA [Suspect]
     Active Substance: USTEKINUMAB
     Dosage: UNK
  315. STELARA [Suspect]
     Active Substance: USTEKINUMAB
     Dosage: UNK
  316. STELARA [Suspect]
     Active Substance: USTEKINUMAB
     Dosage: UNK
  317. STELARA [Suspect]
     Active Substance: USTEKINUMAB
     Dosage: UNK
  318. STELARA [Suspect]
     Active Substance: USTEKINUMAB
     Dosage: UNK
  319. STELARA [Suspect]
     Active Substance: USTEKINUMAB
     Dosage: UNK
  320. STELARA [Suspect]
     Active Substance: USTEKINUMAB
     Dosage: UNK
  321. STELARA [Suspect]
     Active Substance: USTEKINUMAB
     Dosage: UNK
  322. STELARA [Suspect]
     Active Substance: USTEKINUMAB
     Dosage: UNK
  323. STELARA [Suspect]
     Active Substance: USTEKINUMAB
     Dosage: UNK
  324. STELARA [Suspect]
     Active Substance: USTEKINUMAB
     Dosage: UNK
  325. STELARA [Suspect]
     Active Substance: USTEKINUMAB
     Dosage: UNK
  326. STELARA [Suspect]
     Active Substance: USTEKINUMAB
     Dosage: UNK
  327. STELARA [Suspect]
     Active Substance: USTEKINUMAB
     Dosage: UNK
  328. STELARA [Suspect]
     Active Substance: USTEKINUMAB
     Dosage: UNK
  329. STELARA [Suspect]
     Active Substance: USTEKINUMAB
     Dosage: UNK
  330. STELARA [Suspect]
     Active Substance: USTEKINUMAB
     Dosage: UNK
  331. STELARA [Suspect]
     Active Substance: USTEKINUMAB
     Dosage: UNK
  332. STELARA [Suspect]
     Active Substance: USTEKINUMAB
     Dosage: UNK
  333. STELARA [Suspect]
     Active Substance: USTEKINUMAB
     Dosage: UNK
  334. STELARA [Suspect]
     Active Substance: USTEKINUMAB
     Dosage: UNK
  335. STELARA [Suspect]
     Active Substance: USTEKINUMAB
     Dosage: UNK
  336. STELARA [Suspect]
     Active Substance: USTEKINUMAB
     Dosage: UNK
  337. STELARA [Suspect]
     Active Substance: USTEKINUMAB
     Dosage: UNK
  338. STELARA [Suspect]
     Active Substance: USTEKINUMAB
     Dosage: UNK
  339. STELARA [Suspect]
     Active Substance: USTEKINUMAB
     Dosage: UNK
  340. STELARA [Suspect]
     Active Substance: USTEKINUMAB
     Dosage: UNK
  341. STELARA [Suspect]
     Active Substance: USTEKINUMAB
     Dosage: UNK
  342. STELARA [Suspect]
     Active Substance: USTEKINUMAB
     Dosage: UNK
  343. STELARA [Suspect]
     Active Substance: USTEKINUMAB
     Dosage: UNK
  344. STELARA [Suspect]
     Active Substance: USTEKINUMAB
     Dosage: UNK
  345. STELARA [Suspect]
     Active Substance: USTEKINUMAB
     Dosage: UNK
  346. STELARA [Suspect]
     Active Substance: USTEKINUMAB
     Dosage: UNK
  347. STELARA [Suspect]
     Active Substance: USTEKINUMAB
     Dosage: UNK
  348. STELARA [Suspect]
     Active Substance: USTEKINUMAB
     Dosage: UNK
  349. STELARA [Suspect]
     Active Substance: USTEKINUMAB
     Dosage: UNK
  350. STELARA [Suspect]
     Active Substance: USTEKINUMAB
     Dosage: UNK
  351. STELARA [Suspect]
     Active Substance: USTEKINUMAB
     Dosage: UNK
  352. STELARA [Suspect]
     Active Substance: USTEKINUMAB
     Dosage: UNK
  353. STELARA [Suspect]
     Active Substance: USTEKINUMAB
     Dosage: UNK
  354. STELARA [Suspect]
     Active Substance: USTEKINUMAB
     Dosage: UNK
  355. STELARA [Suspect]
     Active Substance: USTEKINUMAB
     Dosage: UNK
  356. STELARA [Suspect]
     Active Substance: USTEKINUMAB
     Dosage: UNK
  357. STELARA [Suspect]
     Active Substance: USTEKINUMAB
     Dosage: UNK
  358. STELARA [Suspect]
     Active Substance: USTEKINUMAB
     Dosage: UNK
  359. STELARA [Suspect]
     Active Substance: USTEKINUMAB
     Dosage: UNK
  360. STELARA [Suspect]
     Active Substance: USTEKINUMAB
     Dosage: UNK
  361. STELARA [Suspect]
     Active Substance: USTEKINUMAB
     Dosage: UNK
  362. STELARA [Suspect]
     Active Substance: USTEKINUMAB
     Dosage: UNK
  363. STELARA [Suspect]
     Active Substance: USTEKINUMAB
     Dosage: UNK
  364. STELARA [Suspect]
     Active Substance: USTEKINUMAB
     Dosage: UNK
  365. STELARA [Suspect]
     Active Substance: USTEKINUMAB
     Dosage: UNK
  366. STELARA [Suspect]
     Active Substance: USTEKINUMAB
     Dosage: UNK
  367. STELARA [Suspect]
     Active Substance: USTEKINUMAB
     Dosage: UNK
  368. STELARA [Suspect]
     Active Substance: USTEKINUMAB
     Dosage: UNK
  369. STELARA [Suspect]
     Active Substance: USTEKINUMAB
     Dosage: UNK
  370. STELARA [Suspect]
     Active Substance: USTEKINUMAB
     Dosage: UNK
  371. STELARA [Suspect]
     Active Substance: USTEKINUMAB
     Dosage: UNK
  372. STELARA [Suspect]
     Active Substance: USTEKINUMAB
     Dosage: UNK
  373. STELARA [Suspect]
     Active Substance: USTEKINUMAB
     Dosage: UNK
  374. STELARA [Suspect]
     Active Substance: USTEKINUMAB
     Dosage: UNK
  375. STELARA [Suspect]
     Active Substance: USTEKINUMAB
     Dosage: UNK
  376. STELARA [Suspect]
     Active Substance: USTEKINUMAB
     Dosage: UNK
  377. STELARA [Suspect]
     Active Substance: USTEKINUMAB
     Dosage: UNK
  378. STELARA [Suspect]
     Active Substance: USTEKINUMAB
     Dosage: UNK
  379. STELARA [Suspect]
     Active Substance: USTEKINUMAB
     Dosage: UNK
  380. STELARA [Suspect]
     Active Substance: USTEKINUMAB
     Dosage: UNK
  381. STELARA [Suspect]
     Active Substance: USTEKINUMAB
     Dosage: UNK
  382. STELARA [Suspect]
     Active Substance: USTEKINUMAB
     Dosage: UNK
  383. SECUKINUMAB [Suspect]
     Active Substance: SECUKINUMAB
     Indication: Product used for unknown indication
     Dosage: 300 MILLIGRAM (300 MG MONTHLY)(300 MG, QMO) OROMUCOSAL SUSPENSION
  384. SECUKINUMAB [Suspect]
     Active Substance: SECUKINUMAB
     Dosage: 300 MILLIGRAM, MONTHLY
  385. SECUKINUMAB [Suspect]
     Active Substance: SECUKINUMAB
     Dosage: 300 MILLIGRAM, MONTHLY (QMO)
  386. SECUKINUMAB [Suspect]
     Active Substance: SECUKINUMAB
     Dosage: 300 MILLIGRAM, MONTHLY
  387. SECUKINUMAB [Suspect]
     Active Substance: SECUKINUMAB
     Dosage: 300 MILLIGRAM, MONTHLY (QMO)
  388. SECUKINUMAB [Suspect]
     Active Substance: SECUKINUMAB
     Dosage: 300 MILLIGRAM, MONTHLY
  389. SECUKINUMAB [Suspect]
     Active Substance: SECUKINUMAB
     Dosage: 300 MILLIGRAM, MONTHLY
  390. SECUKINUMAB [Suspect]
     Active Substance: SECUKINUMAB
     Dosage: 300 MILLIGRAM, MONTHLY
  391. SECUKINUMAB [Suspect]
     Active Substance: SECUKINUMAB
     Dosage: 300 MILLIGRAM, MONTHLY
  392. SECUKINUMAB [Suspect]
     Active Substance: SECUKINUMAB
     Dosage: 300 MILLIGRAM, MONTHLY
  393. SECUKINUMAB [Suspect]
     Active Substance: SECUKINUMAB
     Dosage: 300 MILLIGRAM, MONTHLY (QMO)
  394. SECUKINUMAB [Suspect]
     Active Substance: SECUKINUMAB
     Dosage: 300 MILLIGRAM, MONTHLY (QMO)
  395. SECUKINUMAB [Suspect]
     Active Substance: SECUKINUMAB
     Dosage: 300 MILLIGRAM, MONTHLY (QMO)
  396. SECUKINUMAB [Suspect]
     Active Substance: SECUKINUMAB
     Dosage: 300 MILLIGRAM, MONTHLY (QMO)
  397. SECUKINUMAB [Suspect]
     Active Substance: SECUKINUMAB
     Dosage: 300 MILLIGRAM, MONTHLY (QMO)
  398. SECUKINUMAB [Suspect]
     Active Substance: SECUKINUMAB
     Dosage: 300 MILLIGRAM, MONTHLY (QMO)
  399. SECUKINUMAB [Suspect]
     Active Substance: SECUKINUMAB
     Dosage: 300 MILLIGRAM, MONTHLY
  400. SECUKINUMAB [Suspect]
     Active Substance: SECUKINUMAB
     Dosage: 300 MILLIGRAM, MONTHLY (QMO)
  401. SECUKINUMAB [Suspect]
     Active Substance: SECUKINUMAB
     Dosage: 300 MILLIGRAM, MONTHLY (QMO)
  402. SECUKINUMAB [Suspect]
     Active Substance: SECUKINUMAB
     Dosage: 300 MILLIGRAM, MONTHLY (QMO)
  403. SECUKINUMAB [Suspect]
     Active Substance: SECUKINUMAB
     Dosage: 300 MILLIGRAM, MONTHLY
  404. SECUKINUMAB [Suspect]
     Active Substance: SECUKINUMAB
     Dosage: 300 MILLIGRAM, MONTHLY (QMO)
  405. SECUKINUMAB [Suspect]
     Active Substance: SECUKINUMAB
     Dosage: 300 MILLIGRAM, MONTHLY (QMO)
  406. SECUKINUMAB [Suspect]
     Active Substance: SECUKINUMAB
     Dosage: 300 MILLIGRAM, MONTHLY (QMO)
  407. SECUKINUMAB [Suspect]
     Active Substance: SECUKINUMAB
     Dosage: 300 MILLIGRAM, MONTHLY (QMO)
  408. SECUKINUMAB [Suspect]
     Active Substance: SECUKINUMAB
     Dosage: 300 MILLIGRAM, MONTHLY (QMO, OROMUCOSAL SUSPENSION)
  409. SECUKINUMAB [Suspect]
     Active Substance: SECUKINUMAB
     Dosage: 300 MG, QMO (OROMUCOSAL SUSPENSION)
  410. COSENTYX [Suspect]
     Active Substance: SECUKINUMAB
     Indication: Product used for unknown indication
     Dosage: 300 MILLIGRAM, MONTHLY QMO (300 MG MONTHLY)
  411. COSENTYX [Suspect]
     Active Substance: SECUKINUMAB
     Dosage: 300 MILLIGRAM, MONTHLY QMO (300 MG MONTHLY)
  412. COSENTYX [Suspect]
     Active Substance: SECUKINUMAB
     Dosage: 300 MG, MONTHLY
  413. COSENTYX [Suspect]
     Active Substance: SECUKINUMAB
     Dosage: 300 MG, QMO (MONTHLY)
  414. COSENTYX [Suspect]
     Active Substance: SECUKINUMAB
     Dosage: 300 MG MONTHLY
  415. COSENTYX [Suspect]
     Active Substance: SECUKINUMAB
     Dosage: 300 MG, QMO (MONTHLY)
  416. COSENTYX [Suspect]
     Active Substance: SECUKINUMAB
     Dosage: 300 MG, QMO (MONTHLY)
  417. COSENTYX [Suspect]
     Active Substance: SECUKINUMAB
     Dosage: 300 MG, QMO (MONTHLY)
  418. COSENTYX [Suspect]
     Active Substance: SECUKINUMAB
     Dosage: 300 MG MONTHLY
  419. COSENTYX [Suspect]
     Active Substance: SECUKINUMAB
     Dosage: 300 MG, QMO (MONTHLY)
  420. COSENTYX [Suspect]
     Active Substance: SECUKINUMAB
     Dosage: 300 MG, QMO (MONTHLY)
  421. COSENTYX [Suspect]
     Active Substance: SECUKINUMAB
     Dosage: 300 MG
  422. COSENTYX [Suspect]
     Active Substance: SECUKINUMAB
     Dosage: 300 MILLIGRAM, MONTHLY QMO (300 MG MONTHLY)
  423. COSENTYX [Suspect]
     Active Substance: SECUKINUMAB
     Dosage: 300 MG, MONTHLY
  424. COSENTYX [Suspect]
     Active Substance: SECUKINUMAB
     Dosage: 300 MG, MONTHLY
  425. COSENTYX [Suspect]
     Active Substance: SECUKINUMAB
     Dosage: 300 MG, QMO (MONTHLY)
  426. COSENTYX [Suspect]
     Active Substance: SECUKINUMAB
     Dosage: 300 MILLIGRAM, MONTHLY QMO
  427. COSENTYX [Suspect]
     Active Substance: SECUKINUMAB
     Dosage: 300 MILLIGRAM, MONTHLY QMO (300 MG MONTHLY)
  428. COSENTYX [Suspect]
     Active Substance: SECUKINUMAB
     Dosage: 300 MILLIGRAM, MONTHLY QMO (OROMUCOSAL SUSPENSION)
  429. COSENTYX [Suspect]
     Active Substance: SECUKINUMAB
     Dosage: 300 MILLIGRAM, MONTHLY QMO (300 MG MONTHLY)
  430. COSENTYX [Suspect]
     Active Substance: SECUKINUMAB
     Dosage: 300 MILLIGRAM, MONTHLY QMO (300 MG MONTHLY) (OROMUCOSAL SUSPENSION)
  431. BETAMETHASONE DIPROPIONATE [Suspect]
     Active Substance: BETAMETHASONE DIPROPIONATE
     Indication: Product used for unknown indication
     Dosage: UNK
  432. ACETAMINOPHEN\CODEINE PHOSPHATE [Suspect]
     Active Substance: ACETAMINOPHEN\CODEINE PHOSPHATE
     Indication: Product used for unknown indication
     Dosage: 2 DOSAGE FORM, TID, 2 DOSAGE FORM, TID (30/500MG 2 TABLETS TDS)6 DOSAGE FORM, QD
  433. ACETAMINOPHEN\CODEINE PHOSPHATE [Suspect]
     Active Substance: ACETAMINOPHEN\CODEINE PHOSPHATE
     Dosage: 6 DOSAGE FORM, QD (2 DOSAGE FORM, TID (30/500MG 2 TABLETS TDS) ;TIME INTERVAL:0.33333333 DAYS)
  434. ACETAMINOPHEN\CODEINE PHOSPHATE [Suspect]
     Active Substance: ACETAMINOPHEN\CODEINE PHOSPHATE
     Dosage: 6 DOSAGE FORM, QD  (1 TIME EVERY DAY)
  435. ACETAMINOPHEN\CODEINE PHOSPHATE [Suspect]
     Active Substance: ACETAMINOPHEN\CODEINE PHOSPHATE
     Dosage: 6 DOSAGE FORM, QD  (1 TIME EVERY DAY)
  436. ACETAMINOPHEN\CODEINE PHOSPHATE [Suspect]
     Active Substance: ACETAMINOPHEN\CODEINE PHOSPHATE
     Dosage: 2 DOSAGE FORM, QD
  437. ACETAMINOPHEN\CODEINE PHOSPHATE [Suspect]
     Active Substance: ACETAMINOPHEN\CODEINE PHOSPHATE
     Dosage: 6 DOSAGE FORM, QD  (1 TIME EVERY DAY)
  438. ACETAMINOPHEN\CODEINE PHOSPHATE [Suspect]
     Active Substance: ACETAMINOPHEN\CODEINE PHOSPHATE
     Dosage: 6 DOSAGE FORM, QD  (1 TIME EVERY DAY)
  439. ACETAMINOPHEN\CODEINE PHOSPHATE [Suspect]
     Active Substance: ACETAMINOPHEN\CODEINE PHOSPHATE
     Dosage: 2 DOSAGE FORM, TID (30/500MG 2 TABLETS TDS)
  440. ACETAMINOPHEN\CODEINE PHOSPHATE [Suspect]
     Active Substance: ACETAMINOPHEN\CODEINE PHOSPHATE
     Dosage: 6 DOSAGE FORM, QD (2 DOSAGE FORM, TID (30/500MG 2 TABLETS TDS) ;TIME INTERVAL:0.33333333 DAYS)
  441. ACETAMINOPHEN\CODEINE PHOSPHATE [Suspect]
     Active Substance: ACETAMINOPHEN\CODEINE PHOSPHATE
     Dosage: 2 DOSAGE FORM, QD
  442. ACETAMINOPHEN\CODEINE PHOSPHATE [Suspect]
     Active Substance: ACETAMINOPHEN\CODEINE PHOSPHATE
     Dosage: 2 DOSAGE FORM, QD
  443. ACETAMINOPHEN\CODEINE PHOSPHATE [Suspect]
     Active Substance: ACETAMINOPHEN\CODEINE PHOSPHATE
     Dosage: 6 DOSAGE FORM, QD (2 DOSAGE FORM, TID (30/500MG 2 TABLETS TDS) ;TIME INTERVAL:0.33333333 DAYS)
  444. ACETAMINOPHEN\CODEINE PHOSPHATE [Suspect]
     Active Substance: ACETAMINOPHEN\CODEINE PHOSPHATE
     Dosage: 6 DOSAGE FORM, QD
  445. ACETAMINOPHEN\CODEINE PHOSPHATE [Suspect]
     Active Substance: ACETAMINOPHEN\CODEINE PHOSPHATE
     Dosage: 6 DOSAGE FORM, QD
  446. ACETAMINOPHEN\CODEINE PHOSPHATE [Suspect]
     Active Substance: ACETAMINOPHEN\CODEINE PHOSPHATE
     Dosage: 2 DOSAGE FORM, TID (30/500MG 2 TABLETS TDS)
  447. ACETAMINOPHEN\CODEINE PHOSPHATE [Suspect]
     Active Substance: ACETAMINOPHEN\CODEINE PHOSPHATE
     Dosage: 6 DOSAGE FORM, QD (2 DOSAGE FORM, TID (30/500MG 2 TABLETS TDS) ;TIME INTERVAL:0.33333333 DAYS)
  448. DAIVOBET [Suspect]
     Active Substance: BETAMETHASONE DIPROPIONATE\CALCIPOTRIENE
     Indication: Product used for unknown indication
     Dosage: UNK, PRN (RARELY, QV)
  449. DAIVOBET [Suspect]
     Active Substance: BETAMETHASONE DIPROPIONATE\CALCIPOTRIENE
     Dosage: UNK (RARELY, QV)
  450. DAIVOBET [Suspect]
     Active Substance: BETAMETHASONE DIPROPIONATE\CALCIPOTRIENE
     Dosage: UNK (RARELY, QV)
  451. COCODAMOL [Suspect]
     Active Substance: ACETAMINOPHEN\CODEINE PHOSPHATE
     Indication: Product used for unknown indication
     Dosage: 6 DOSAGE FORM, QD
  452. COCODAMOL [Suspect]
     Active Substance: ACETAMINOPHEN\CODEINE PHOSPHATE
     Dosage: 2 DOSAGE FORM, QD
  453. COCODAMOL [Suspect]
     Active Substance: ACETAMINOPHEN\CODEINE PHOSPHATE
     Dosage: 2 DOSAGE FORM, TID (30/500MG 2 TABLETS TDS)
  454. COCODAMOL [Suspect]
     Active Substance: ACETAMINOPHEN\CODEINE PHOSPHATE
     Dosage: 2 DOSAGE FORM, QD
  455. COCODAMOL [Suspect]
     Active Substance: ACETAMINOPHEN\CODEINE PHOSPHATE
     Dosage: 6 DOSAGE FORM, QD
  456. COCODAMOL [Suspect]
     Active Substance: ACETAMINOPHEN\CODEINE PHOSPHATE
     Dosage: 2 DOSAGE FORM, TID (30/500MG 2 TABLETS TDS)
  457. COCODAMOL [Suspect]
     Active Substance: ACETAMINOPHEN\CODEINE PHOSPHATE
     Dosage: 6 DOSAGE FORM, QD, DOSAGE FORM TABLET
  458. COCODAMOL [Suspect]
     Active Substance: ACETAMINOPHEN\CODEINE PHOSPHATE
     Dosage: 2 DOSAGE FORM, QD (30/500MG 2 TABLETS TDS), DOSAGE FORM TABLETTIME INTERVAL: 0.33333333 DAYS: 30/500MG 2 TABLETS TDS
  459. METHOTREXATE [Suspect]
     Active Substance: METHOTREXATE
     Indication: Psoriasis
     Dosage: UNK
  460. METHOTREXATE [Suspect]
     Active Substance: METHOTREXATE
     Dosage: UNK
  461. METHOTREXATE [Suspect]
     Active Substance: METHOTREXATE
     Dosage: UNK
  462. METHOTREXATE [Suspect]
     Active Substance: METHOTREXATE
     Dosage: UNK
  463. METHOTREXATE [Suspect]
     Active Substance: METHOTREXATE
     Dosage: UNK
  464. METHOTREXATE [Suspect]
     Active Substance: METHOTREXATE
     Dosage: UNK
  465. METHOTREXATE [Suspect]
     Active Substance: METHOTREXATE
     Dosage: UNK
  466. METHOTREXATE [Suspect]
     Active Substance: METHOTREXATE
     Dosage: UNK
  467. METHOTREXATE [Suspect]
     Active Substance: METHOTREXATE
     Dosage: UNK
  468. METHOTREXATE [Suspect]
     Active Substance: METHOTREXATE
     Dosage: 2 DOSAGE FORM, TID (30/500MG 2 TABLETS TDS), TIME INTERVAL)
  469. METHOTREXATE [Suspect]
     Active Substance: METHOTREXATE
     Dosage: UNK
  470. METHOTREXATE [Suspect]
     Active Substance: METHOTREXATE
     Dosage: UNK
  471. METHOTREXATE [Suspect]
     Active Substance: METHOTREXATE
     Dosage: UNK
  472. METHOTREXATE [Suspect]
     Active Substance: METHOTREXATE
     Dosage: UNK
  473. METHOTREXATE [Suspect]
     Active Substance: METHOTREXATE
     Dosage: UNK
  474. CODEINE [Suspect]
     Active Substance: CODEINE
     Indication: Product used for unknown indication
     Dosage: 6 DOSAGE FORM, QD
  475. CODEINE [Suspect]
     Active Substance: CODEINE
     Dosage: 2 DOSAGE FORM, QD
  476. CODEINE [Suspect]
     Active Substance: CODEINE
     Dosage: 2 DOSAGE FORM, QD
  477. CODEINE [Suspect]
     Active Substance: CODEINE
     Dosage: 2 DOSAGE FORM, QD
  478. CODEINE [Suspect]
     Active Substance: CODEINE
     Dosage: 2 DOSAGE FORM, QD
  479. CODEINE [Suspect]
     Active Substance: CODEINE
     Dosage: 6 DOSAGE FORM, QD
  480. CODEINE [Suspect]
     Active Substance: CODEINE
     Dosage: 6 DOSAGE FORM, QD
  481. CODEINE [Suspect]
     Active Substance: CODEINE
     Dosage: 6 DOSAGE FORM, QD
  482. CODEINE [Suspect]
     Active Substance: CODEINE
     Dosage: 6 DOSAGE FORM, QD
  483. CODEINE [Suspect]
     Active Substance: CODEINE
     Dosage: 6 DOSAGE FORM, QD
  484. CODEINE [Suspect]
     Active Substance: CODEINE
     Dosage: 6 DOSAGE FORM, QD
  485. CODEINE [Suspect]
     Active Substance: CODEINE
     Dosage: 6 DOSAGE FORM, QD
  486. CODEINE [Suspect]
     Active Substance: CODEINE
     Dosage: 6 DOSAGE FORM, QD
  487. CODEINE [Suspect]
     Active Substance: CODEINE
     Dosage: 6 DOSAGE FORM, QD
  488. CODEINE [Suspect]
     Active Substance: CODEINE
     Dosage: 6 DOSAGE FORM, QD
  489. CODEINE [Suspect]
     Active Substance: CODEINE
     Dosage: 6 DOSAGE FORM, QD
  490. CODEINE [Suspect]
     Active Substance: CODEINE
     Dosage: 6 DOSAGE FORM, QD

REACTIONS (11)
  - Chest pain [Unknown]
  - Skin hyperpigmentation [Unknown]
  - Wheezing [Unknown]
  - Burning sensation [Unknown]
  - Rash [Unknown]
  - Hypertension [Unknown]
  - Pruritus genital [Unknown]
  - Rash pruritic [Unknown]
  - Therapeutic product effect incomplete [Unknown]
  - Drug ineffective [Unknown]
  - Off label use [Unknown]
